FAERS Safety Report 6173239-5 (Version None)
Quarter: 2009Q2

REPORT INFORMATION
  Report Type: 
  Country: None (occurrence: None)
  Receive Date: 20090430
  Receipt Date: 20090424
  Transmission Date: 20091009
  Serious: Yes (Other)
  Sender: FDA-Public Use
  Company Number: US-PFIZER INC-2009202972

PATIENT
  Age: 9 Year

DRUGS (2)
  1. IRINOTECAN HCL [Suspect]
     Indication: GLIOMA
     Dosage: EVERY 2 WEEKS
  2. BEVACIZUMAB [Suspect]
     Indication: GLIOMA
     Dosage: 10 MG/KG EVERY TWO WEEKS

REACTIONS (1)
  - LEUKOENCEPHALOPATHY [None]
